FAERS Safety Report 10566478 (Version 1)
Quarter: 2014Q4

REPORT INFORMATION
  Report Type: Spontaneous
  Country: US (occurrence: US)
  Receive Date: 20141105
  Receipt Date: 20141105
  Transmission Date: 20150529
  Serious: No
  Sender: FDA-Public Use
  Company Number: US-ASTRAZENECA-2014SE81143

PATIENT
  Age: 78 Year
  Sex: Female

DRUGS (14)
  1. ZIAC [Suspect]
     Active Substance: BISOPROLOL FUMARATE\HYDROCHLOROTHIAZIDE
     Route: 065
  2. ANTIVERT [Suspect]
     Active Substance: MECLIZINE HYDROCHLORIDE
     Route: 065
  3. DILTIAZEM HCL [Suspect]
     Active Substance: DILTIAZEM HYDROCHLORIDE
     Route: 065
  4. FIBRATE [Suspect]
     Active Substance: UNSPECIFIED INGREDIENT
     Route: 065
  5. TOPROL XL [Suspect]
     Active Substance: METOPROLOL SUCCINATE
     Route: 048
  6. NEXIUM [Suspect]
     Active Substance: ESOMEPRAZOLE MAGNESIUM
     Route: 048
  7. LISINOPRIL. [Suspect]
     Active Substance: LISINOPRIL
     Route: 048
  8. COZAAR [Suspect]
     Active Substance: LOSARTAN POTASSIUM
     Route: 065
  9. DARVOCET [Suspect]
     Active Substance: ACETAMINOPHEN\PROPOXYPHENE HYDROCHLORIDE
     Route: 065
  10. MONOPRIL [Suspect]
     Active Substance: FOSINOPRIL SODIUM
     Route: 065
  11. HYDROCHLOROTHIAZIDE. [Suspect]
     Active Substance: HYDROCHLOROTHIAZIDE
     Route: 065
  12. ATACAND [Suspect]
     Active Substance: CANDESARTAN CILEXETIL
     Route: 048
  13. MULTAQ [Suspect]
     Active Substance: DRONEDARONE
     Route: 065
  14. CORTISONE [Suspect]
     Active Substance: CORTISONE\HYDROCORTISONE

REACTIONS (1)
  - Drug hypersensitivity [Unknown]
